FAERS Safety Report 24900652 (Version 1)
Quarter: 2025Q1

REPORT INFORMATION
  Report Type: Spontaneous
  Country: EG (occurrence: EG)
  Receive Date: 20250129
  Receipt Date: 20250129
  Transmission Date: 20250409
  Serious: Yes (Hospitalization)
  Sender: BIOCON
  Company Number: EG-EGYPT REGULATORY AGENCY (CAPA)-BBL2025000377

PATIENT

DRUGS (3)
  1. HULIO [Suspect]
     Active Substance: ADALIMUMAB-FKJP
     Indication: Rheumatoid arthritis
     Dosage: 1 DOSAGE FORM, Q2W
     Route: 058
     Dates: start: 20241205
  2. HULIO [Suspect]
     Active Substance: ADALIMUMAB-FKJP
  3. HULIO [Suspect]
     Active Substance: ADALIMUMAB-FKJP

REACTIONS (4)
  - Application site hypersensitivity [Recovered/Resolved]
  - Cellulitis [Unknown]
  - Tachycardia [Unknown]
  - Inappropriate schedule of product administration [Unknown]

NARRATIVE: CASE EVENT DATE: 20241205
